FAERS Safety Report 13496220 (Version 1)
Quarter: 2017Q2

REPORT INFORMATION
  Report Type: Spontaneous
  Country: US (occurrence: US)
  Receive Date: 20170428
  Receipt Date: 20170428
  Transmission Date: 20170830
  Serious: Yes (Other)
  Sender: FDA-Public Use
  Company Number: US-AMGEN-USASP2017059856

PATIENT
  Age: 59 Year
  Sex: Female

DRUGS (11)
  1. PONATINIB [Concomitant]
     Active Substance: PONATINIB
     Dosage: UNK
  2. DASATINIB [Concomitant]
     Active Substance: DASATINIB
     Dosage: UNK
  3. VINCRISTINE [Concomitant]
     Active Substance: VINCRISTINE
     Dosage: UNK
  4. DEXAMETHASONE. [Concomitant]
     Active Substance: DEXAMETHASONE
     Dosage: UNK
  5. INOTUZUMAB OZOGAMICIN [Concomitant]
     Active Substance: INOTUZUMAB OZOGAMICIN
     Dosage: UNK
  6. BLINCYTO [Suspect]
     Active Substance: BLINATUMOMAB
     Indication: PHILADELPHIA CHROMOSOME POSITIVE
     Dosage: UNK
     Route: 065
  7. NILOTINIB [Concomitant]
     Active Substance: NILOTINIB
     Dosage: UNK
  8. PREDNISONE. [Concomitant]
     Active Substance: PREDNISONE
     Dosage: UNK
  9. BOSUTINIB [Concomitant]
     Active Substance: BOSUTINIB
     Dosage: UNK
  10. BLINCYTO [Suspect]
     Active Substance: BLINATUMOMAB
     Indication: ACUTE LYMPHOCYTIC LEUKAEMIA
  11. IMATINIB [Concomitant]
     Active Substance: IMATINIB
     Dosage: UNK

REACTIONS (11)
  - Respiratory failure [Unknown]
  - Bacteraemia [Unknown]
  - Hypotension [Unknown]
  - Pancreatitis [Unknown]
  - Off label use [Unknown]
  - Hilar lymphadenopathy [Unknown]
  - Abdominal pain [Unknown]
  - Mastoiditis [Unknown]
  - Pneumonia [Unknown]
  - Transaminases increased [Unknown]
  - Ischaemic stroke [Unknown]
